FAERS Safety Report 8747911 (Version 2)
Quarter: 2012Q4

REPORT INFORMATION
  Report Type: 
  Country: US (occurrence: US)
  Receive Date: 20120827
  Receipt Date: 20120911
  Transmission Date: 20130627
  Serious: Yes (Hospitalization, Other)
  Sender: FDA-Public Use
  Company Number: US-BAYER-2012-088386

PATIENT
  Age: 60 Year
  Sex: Male
  Weight: 99.79 kg

DRUGS (17)
  1. BETASERON [Suspect]
     Indication: MULTIPLE SCLEROSIS
     Dosage: 0.25 mg, QOD
     Route: 058
     Dates: start: 200712
  2. CELEBREX [Concomitant]
     Indication: BACK PAIN
     Dosage: 200 mg, BID
  3. CELEBREX [Concomitant]
     Indication: ARTHRALGIA
  4. TRAMADOL [Concomitant]
     Indication: BACK PAIN
     Dosage: 50 mg, Q3HR
  5. TRAMADOL [Concomitant]
     Indication: ARTHRALGIA
  6. TYLENOL [PARACETAMOL] [Concomitant]
     Indication: BACK PAIN
     Dosage: 500 mg, QID
  7. TYLENOL [PARACETAMOL] [Concomitant]
     Indication: ARTHRALGIA
  8. VYTORIN [Concomitant]
     Indication: CHOLESTEROSIS
     Dosage: 10/20 mg, QD
  9. BACLOFEN [Concomitant]
     Indication: MUSCLE SPASMS
     Dosage: 10 mg, TID
  10. VENLAFAXINE HYDROCHLORIDE [Concomitant]
     Indication: DEPRESSION
     Dosage: 75 mg, BID
  11. TAMSULOSIN HYDROCHLORIDE [Concomitant]
     Indication: URINARY TRACT DISORDER
     Dosage: 0.4 mg, QD
  12. OXYBUTYNIN [Concomitant]
     Indication: URINARY INCONTINENCE
     Dosage: 10 mg, QD
  13. NEVANAC [Concomitant]
     Indication: UVEITIS
     Dosage: 0.1, both eyes
     Route: 047
  14. DOCUSATE SODIUM [Concomitant]
     Indication: CONSTIPATION
     Dosage: 7100 mg, BID
  15. NORCO [Concomitant]
     Indication: BACK PAIN
     Dosage: 50 mg,  PRN
  16. NORCO [Concomitant]
     Indication: ARTHRALGIA
  17. COUMADIN [Concomitant]
     Indication: THROMBOSIS PROPHYLAXIS
     Dosage: 6 mg, QD

REACTIONS (1)
  - Knee arthroplasty [None]
